FAERS Safety Report 12230847 (Version 1)
Quarter: 2016Q2

REPORT INFORMATION
  Report Type: Report from Study
  Country: BR (occurrence: BR)
  Receive Date: 20160401
  Receipt Date: 20160401
  Transmission Date: 20160815
  Serious: Yes (Other)
  Sender: FDA-Public Use
  Company Number: PHHY2016BR042848

PATIENT
  Age: 81 Year
  Sex: Male
  Weight: 90 kg

DRUGS (2)
  1. EXELON PATCH [Suspect]
     Active Substance: RIVASTIGMINE
     Indication: DEMENTIA ALZHEIMER^S TYPE
     Dosage: PATCH 5 (CM2)
     Route: 062
     Dates: start: 20150904
  2. EXELON PATCH [Suspect]
     Active Substance: RIVASTIGMINE
     Dosage: PATCH 10 (CM2)
     Route: 062
     Dates: start: 20151004

REACTIONS (5)
  - Pneumonia [Unknown]
  - Pain [Unknown]
  - Influenza [Unknown]
  - Urinary tract infection [Unknown]
  - Nasopharyngitis [Unknown]

NARRATIVE: CASE EVENT DATE: 20151012
